FAERS Safety Report 25014040 (Version 2)
Quarter: 2025Q1

REPORT INFORMATION
  Report Type: Spontaneous
  Country: PH (occurrence: PH)
  Receive Date: 20250226
  Receipt Date: 20250314
  Transmission Date: 20250409
  Serious: Yes (Other)
  Sender: JOHNSON AND JOHNSON
  Company Number: PH-JNJFOC-20250259876

PATIENT
  Age: 49 Year
  Sex: Female

DRUGS (10)
  1. RISPERDAL [Suspect]
     Active Substance: RISPERIDONE
     Indication: Product used for unknown indication
     Dosage: 3-4 MG
     Route: 065
  2. RISPERDAL [Suspect]
     Active Substance: RISPERIDONE
  3. RISPERDAL [Suspect]
     Active Substance: RISPERIDONE
  4. RISPERDAL [Suspect]
     Active Substance: RISPERIDONE
  5. RISPERDAL [Suspect]
     Active Substance: RISPERIDONE
  6. RISPERDAL [Suspect]
     Active Substance: RISPERIDONE
  7. LYBALVI [Suspect]
     Active Substance: OLANZAPINE\SAMIDORPHAN L-MALATE
     Indication: Product used for unknown indication
  8. DEPAKOTE [Concomitant]
     Active Substance: DIVALPROEX SODIUM
     Indication: Product used for unknown indication
     Route: 065
  9. TRAZODONE [Concomitant]
     Active Substance: TRAZODONE HYDROCHLORIDE
     Indication: Product used for unknown indication
     Route: 065
  10. COGENTIN [Concomitant]
     Active Substance: BENZTROPINE MESYLATE
     Indication: Product used for unknown indication
     Route: 065

REACTIONS (2)
  - Unresponsive to stimuli [Unknown]
  - Tremor [Not Recovered/Not Resolved]
